FAERS Safety Report 5127746-4 (Version None)
Quarter: 2006Q4

REPORT INFORMATION
  Report Type: 
  Country: None (occurrence: None)
  Receive Date: 20061016
  Receipt Date: 20061004
  Transmission Date: 20070319
  Serious: Yes (Death, Other)
  Sender: FDA-Public Use
  Company Number: US-PURDUE-USA_2006_0025349

PATIENT
  Age: 23 Year
  Sex: Male

DRUGS (3)
  1. OXYCODONE HCL [Suspect]
     Indication: DRUG ABUSER
     Dosage: UNK, UNK
  2. XANAX [Suspect]
     Indication: DRUG ABUSER
     Dosage: UNK, UNK
  3. MARIJUANA [Suspect]
     Indication: DRUG ABUSER
     Dosage: UNK, UNK

REACTIONS (3)
  - FALL [None]
  - MULTIPLE DRUG OVERDOSE ACCIDENTAL [None]
  - RESPIRATORY ARREST [None]
